FAERS Safety Report 12961494 (Version 2)
Quarter: 2016Q4

REPORT INFORMATION
  Report Type: Spontaneous
  Country: GB (occurrence: GB)
  Receive Date: 20161121
  Receipt Date: 20161129
  Transmission Date: 20170207
  Serious: Yes (Hospitalization, Other)
  Sender: FDA-Public Use
  Company Number: GB-TEVA-712291ISR

PATIENT
  Age: 85 Year
  Sex: Female

DRUGS (5)
  1. AUGMENTIN [Suspect]
     Active Substance: AMOXICILLIN\CLAVULANATE POTASSIUM
     Route: 065
  2. TEMOCILLIN [Suspect]
     Active Substance: TEMOCILLIN
     Route: 065
  3. CEFTAZIDIME. [Suspect]
     Active Substance: CEFTAZIDIME
     Indication: OSTEOMYELITIS
     Route: 065
  4. MEROPENEM. [Suspect]
     Active Substance: MEROPENEM
     Route: 065
  5. AMOXICILLIN. [Suspect]
     Active Substance: AMOXICILLIN
     Route: 065

REACTIONS (5)
  - Confusional state [Recovering/Resolving]
  - Body temperature abnormal [Unknown]
  - Acute kidney injury [Recovering/Resolving]
  - Status epilepticus [Unknown]
  - Encephalopathy [Recovering/Resolving]
